FAERS Safety Report 18149196 (Version 1)
Quarter: 2020Q3

REPORT INFORMATION
  Report Type: Spontaneous
  Country: CA (occurrence: CA)
  Receive Date: 20200813
  Receipt Date: 20200813
  Transmission Date: 20201103
  Serious: Yes (Hospitalization)
  Sender: FDA-Public Use
  Company Number: CA-SAMSUNG BIOEPIS-SB-2020-25394

PATIENT

DRUGS (21)
  1. TRIAMCINOLONE ACETONIDE. [Suspect]
     Active Substance: TRIAMCINOLONE ACETONIDE
     Indication: JUVENILE IDIOPATHIC ARTHRITIS
  2. ANAKINRA [Suspect]
     Active Substance: ANAKINRA
     Indication: JUVENILE IDIOPATHIC ARTHRITIS
     Route: 058
  3. PREDNISONE. [Suspect]
     Active Substance: PREDNISONE
     Route: 048
  4. ENBREL [Suspect]
     Active Substance: ETANERCEPT
     Indication: JUVENILE IDIOPATHIC ARTHRITIS
     Route: 058
  5. ORENCIA [Suspect]
     Active Substance: ABATACEPT
     Indication: JUVENILE IDIOPATHIC ARTHRITIS
     Route: 042
  6. SULFASALAZINE. [Suspect]
     Active Substance: SULFASALAZINE
     Indication: JUVENILE IDIOPATHIC ARTHRITIS
     Route: 048
  7. INFLIXIMAB [Suspect]
     Active Substance: INFLIXIMAB
     Indication: JUVENILE IDIOPATHIC ARTHRITIS
     Route: 042
  8. INFLIXIMAB [Suspect]
     Active Substance: INFLIXIMAB
     Route: 065
  9. APO?PREDNISONE [Suspect]
     Active Substance: PREDNISONE
     Indication: JUVENILE IDIOPATHIC ARTHRITIS
     Route: 048
  10. HUMIRA [Suspect]
     Active Substance: ADALIMUMAB
     Indication: JUVENILE IDIOPATHIC ARTHRITIS
     Dosage: UNKNOWN,SOLUTION SUBCUTANEOUS
     Route: 058
  11. ACTEMRA [Suspect]
     Active Substance: TOCILIZUMAB
     Indication: JUVENILE IDIOPATHIC ARTHRITIS
     Route: 042
  12. APO?NAPROXEN [Suspect]
     Active Substance: NAPROXEN
     Indication: JUVENILE IDIOPATHIC ARTHRITIS
     Dosage: UNKNOWN
     Route: 065
  13. ENBREL [Suspect]
     Active Substance: ETANERCEPT
     Route: 058
  14. TRIAMCINOLONE [Suspect]
     Active Substance: TRIAMCINOLONE
     Indication: JUVENILE IDIOPATHIC ARTHRITIS
     Route: 058
  15. HYDROXYCHLOROQUINE [Suspect]
     Active Substance: HYDROXYCHLOROQUINE
     Indication: JUVENILE IDIOPATHIC ARTHRITIS
     Route: 048
  16. IMMUNE GLOBULIN (IMMUNOGLOBULINS NOS) [Suspect]
     Active Substance: IMMUNE GLOBULIN NOS
     Indication: JUVENILE IDIOPATHIC ARTHRITIS
     Route: 042
  17. TRIAMCINOLONE ACETONIDE. [Suspect]
     Active Substance: TRIAMCINOLONE ACETONIDE
     Indication: SEASONAL ALLERGY
     Dosage: UNKNOWN, SUSPENSION INTRA? ARTICULAR
     Route: 065
  18. METHOTREXATE. [Suspect]
     Active Substance: METHOTREXATE
     Indication: JUVENILE IDIOPATHIC ARTHRITIS
     Route: 058
  19. PREDNISONE. [Suspect]
     Active Substance: PREDNISONE
     Indication: JUVENILE IDIOPATHIC ARTHRITIS
     Route: 048
  20. TRIAMCINOLONE ACETONIDE. [Suspect]
     Active Substance: TRIAMCINOLONE ACETONIDE
     Indication: RHINITIS PERENNIAL
  21. NAPROXEN. [Suspect]
     Active Substance: NAPROXEN
     Indication: JUVENILE IDIOPATHIC ARTHRITIS
     Dosage: UNKNOWN
     Route: 065

REACTIONS (22)
  - Adrenal insufficiency [Unknown]
  - Arthritis [Unknown]
  - Bone density increased [Unknown]
  - Diarrhoea [Unknown]
  - Obesity [Unknown]
  - Antibody test positive [Unknown]
  - Condition aggravated [Unknown]
  - Septic shock [Unknown]
  - C-reactive protein increased [Unknown]
  - Loss of personal independence in daily activities [Unknown]
  - Psoriasis [Unknown]
  - Drug ineffective [Unknown]
  - Drug intolerance [Unknown]
  - Vomiting [Unknown]
  - Wheelchair user [Unknown]
  - Juvenile idiopathic arthritis [Unknown]
  - Polyarthritis [Unknown]
  - Red blood cell sedimentation rate increased [Unknown]
  - Synovitis [Unknown]
  - Product use in unapproved indication [Unknown]
  - Body height below normal [Unknown]
  - Human antichimeric antibody positive [Unknown]
